FAERS Safety Report 18347427 (Version 2)
Quarter: 2020Q4

REPORT INFORMATION
  Report Type: Spontaneous
  Country: DE (occurrence: DE)
  Receive Date: 20201006
  Receipt Date: 20201015
  Transmission Date: 20210114
  Serious: Yes (Other)
  Sender: FDA-Public Use
  Company Number: NVSC2020DE262932

PATIENT
  Age: 79 Year
  Sex: Male
  Weight: 65 kg

DRUGS (18)
  1. ASPIRIN. [Concomitant]
     Active Substance: ASPIRIN
     Indication: THROMBOSIS PROPHYLAXIS
  2. RAMIPRIL-ISIS [Concomitant]
     Indication: BLOOD PRESSURE MEASUREMENT
     Dosage: UNK (ZUM ODER NACH DEM ESSEN)
     Route: 065
     Dates: start: 20190705
  3. LEVETIRACETAM. [Suspect]
     Active Substance: LEVETIRACETAM
     Dosage: 1250 MG (500-0-750)
     Route: 065
     Dates: start: 20200219
  4. LAMOTRIGINE. [Suspect]
     Active Substance: LAMOTRIGINE
     Indication: EPILEPSY
     Dosage: 25 MG, QD (0-0-25)
     Route: 065
     Dates: start: 20120626
  5. LAMOTRIGINE. [Suspect]
     Active Substance: LAMOTRIGINE
     Dosage: 100 MG, Q12H (100-0-100MG)
     Route: 065
     Dates: start: 20171107
  6. GLIVEC [Concomitant]
     Active Substance: IMATINIB MESYLATE
     Indication: CHRONIC MYELOID LEUKAEMIA
     Dosage: 100 MG, Q6H (4X100MG/TAG)
     Route: 065
     Dates: start: 20020211
  7. TASIGNA [Concomitant]
     Active Substance: NILOTINIB
     Indication: PRODUCT USED FOR UNKNOWN INDICATION
     Dosage: 200 MG, QD
     Route: 065
     Dates: start: 201310
  8. LAMOTRIGINE. [Suspect]
     Active Substance: LAMOTRIGINE
     Dosage: 200 MG, Q12H (200 - 0 - 200)
     Route: 065
     Dates: start: 20171107
  9. LAMOTRIGINE. [Suspect]
     Active Substance: LAMOTRIGINE
     Dosage: 125 MG, Q12H (125-0-125)
     Route: 065
     Dates: start: 20171220
  10. GLIVEC [Concomitant]
     Active Substance: IMATINIB MESYLATE
     Dosage: 400 MG, QD (0-0-400)
     Route: 065
     Dates: start: 20140701, end: 20141222
  11. ZOPICLODURA [Concomitant]
     Active Substance: ZOPICLONE
     Indication: SLEEP DISORDER
     Dosage: 7.5 UG (NUR IM NOTFALL BEI SCHLAFST?RUNGEN)
     Route: 065
  12. LAMOTRIGINE. [Suspect]
     Active Substance: LAMOTRIGINE
     Dosage: 25 MG, Q8H (25 - 25 - 25MG)
     Route: 065
     Dates: start: 20161108
  13. LEVETIRACETAM. [Suspect]
     Active Substance: LEVETIRACETAM
     Indication: EPILEPSY
     Dosage: 500 - 0 - 750MG/TAG
     Route: 048
     Dates: start: 20190913
  14. LAMOTRIGINE. [Suspect]
     Active Substance: LAMOTRIGINE
     Dosage: 150 MG, Q12H (150-0-1150MG)
     Route: 065
     Dates: start: 20180211
  15. TAVOR [Concomitant]
     Indication: PRODUCT USED FOR UNKNOWN INDICATION
     Dosage: 1 MG, PRN (NUR IM NOTFALL BEI EINER ATTACKE)
     Route: 065
  16. LEVETIRACETAM. [Suspect]
     Active Substance: LEVETIRACETAM
     Dosage: 1500 MG, QD (500 - 0 - 1000)
     Route: 048
     Dates: start: 20191030
  17. LAMOTRIGINE. [Suspect]
     Active Substance: LAMOTRIGINE
     Dosage: 75 MG, Q12H (75-0-75MG)
     Route: 065
     Dates: start: 20170207
  18. ASPIRIN. [Concomitant]
     Active Substance: ASPIRIN
     Indication: PROPHYLAXIS
     Dosage: 100 MG, QD (1-0-0 NACH DEM ESSEN)
     Route: 065

REACTIONS (7)
  - Basal cell carcinoma [Not Recovered/Not Resolved]
  - Gait disturbance [Not Recovered/Not Resolved]
  - Dizziness [Not Recovered/Not Resolved]
  - Adverse reaction [Unknown]
  - Fatigue [Not Recovered/Not Resolved]
  - Depression [Not Recovered/Not Resolved]
  - Vertigo positional [Not Recovered/Not Resolved]

NARRATIVE: CASE EVENT DATE: 20190920
